FAERS Safety Report 10203468 (Version 1)
Quarter: 2014Q2

REPORT INFORMATION
  Report Type: Spontaneous
  Country: ZA (occurrence: None)
  Receive Date: 20140523
  Receipt Date: 20140523
  Transmission Date: 20141212
  Serious: Yes (Hospitalization, Other)
  Sender: FDA-Public Use
  Company Number: 2014000145

PATIENT
  Age: 54 Year
  Sex: Male
  Weight: 72 kg

DRUGS (3)
  1. ACEON (PERINDOPRIL ERBUMINE) TABLET [Suspect]
     Indication: HYPERTENSION
     Route: 048
     Dates: start: 1999, end: 201404
  2. DIAGLUCIDE (GLICLAZIDE) [Concomitant]
  3. ASPAVOR (ATORVASTATIN CALCIUM) [Concomitant]

REACTIONS (8)
  - Testicular swelling [None]
  - Swollen tongue [None]
  - Lip swelling [None]
  - Pharyngeal oedema [None]
  - Local swelling [None]
  - Urticaria [None]
  - Hypersensitivity [None]
  - Alcohol use [None]
